FAERS Safety Report 5161028-X (Version None)
Quarter: 2006Q4

REPORT INFORMATION
  Report Type: 
  Country: None (occurrence: None)
  Receive Date: 20061130
  Receipt Date: 20061123
  Transmission Date: 20070319
  Serious: Yes (Other)
  Sender: FDA-Public Use
  Company Number: CL-BAYER-200615987GDS

PATIENT
  Age: 60 Year
  Sex: Male
  Weight: 96 kg

DRUGS (2)
  1. CIPROFLOXACIN HYDROCHLORIDE [Suspect]
     Indication: PROSTATITIS
     Dosage: UNIT DOSE: 1000 MG
     Route: 048
     Dates: start: 20061108, end: 20061108
  2. ENALAPRIL MALEATE [Concomitant]
     Indication: LABILE BLOOD PRESSURE
     Route: 048
     Dates: start: 20030101

REACTIONS (2)
  - GLOSSITIS [None]
  - SPEECH DISORDER [None]
